FAERS Safety Report 5767420-4 (Version None)
Quarter: 2008Q2

REPORT INFORMATION
  Report Type: 
  Country: None (occurrence: None)
  Receive Date: 20080612
  Receipt Date: 20080610
  Transmission Date: 20081010
  Serious: Yes (Death, Other)
  Sender: FDA-Public Use
  Company Number: US-BRISTOL-MYERS SQUIBB COMPANY-14224257

PATIENT
  Age: 81 Year

DRUGS (1)
  1. AVALIDE [Suspect]
     Dosage: DF= 150/12.5

REACTIONS (2)
  - DEATH [None]
  - SHOCK [None]
